FAERS Safety Report 8352084-6 (Version None)
Quarter: 2012Q2

REPORT INFORMATION
  Report Type: 
  Country: None (occurrence: None)
  Receive Date: 20120511
  Receipt Date: 20120430
  Transmission Date: 20120825
  Serious: Yes (Death, Life-Threatening, Hospitalization, Other)
  Sender: FDA-Public Use
  Company Number: DE-JNJFOC-20120307241

PATIENT
  Sex: Male

DRUGS (3)
  1. LHRH AGONIST [Concomitant]
     Route: 065
  2. ZYTIGA [Suspect]
     Indication: PROSTATE CANCER METASTATIC
     Route: 048
     Dates: start: 20120307, end: 20120310
  3. PREDNISONE TAB [Concomitant]
     Route: 048
     Dates: start: 20120307, end: 20120313

REACTIONS (6)
  - TRANSAMINASES INCREASED [None]
  - BLOOD BILIRUBIN INCREASED [None]
  - PROSTATE CANCER METASTATIC [None]
  - ASCITES [None]
  - CHOLECYSTITIS ACUTE [None]
  - JAUNDICE [None]
